FAERS Safety Report 6979378-0 (Version None)
Quarter: 2010Q3

REPORT INFORMATION
  Report Type: 
  Country: None (occurrence: None)
  Receive Date: 20100910
  Receipt Date: 20100910
  Transmission Date: 20110219
  Serious: Yes (Hospitalization, Other)
  Sender: FDA-Public Use
  Company Number: None

PATIENT
  Sex: Female
  Weight: 86.1834 kg

DRUGS (2)
  1. CIPROFLOXACIN [Suspect]
     Indication: ACROCHORDON
     Dosage: 500 MG TAB 2X DAILY FOR 7 DAYS
     Dates: start: 20091121, end: 20091127
  2. CIPROFLOXACIN [Suspect]
     Indication: SKIN INFECTION
     Dosage: 500 MG TAB 2X DAILY FOR 7 DAYS
     Dates: start: 20091121, end: 20091127

REACTIONS (18)
  - ANXIETY [None]
  - CHEST PAIN [None]
  - DEPRESSION [None]
  - DIZZINESS [None]
  - DYSPNOEA [None]
  - FATIGUE [None]
  - HYPOAESTHESIA [None]
  - INSOMNIA [None]
  - MOBILITY DECREASED [None]
  - MOOD ALTERED [None]
  - MUSCULAR WEAKNESS [None]
  - MYALGIA [None]
  - PARAESTHESIA [None]
  - RESTLESSNESS [None]
  - SLEEP APNOEA SYNDROME [None]
  - TENDON DISORDER [None]
  - VENTRICULAR EXTRASYSTOLES [None]
  - VISUAL IMPAIRMENT [None]
